FAERS Safety Report 14913689 (Version 2)
Quarter: 2018Q2

REPORT INFORMATION
  Report Type: Spontaneous
  Country: CA (occurrence: CA)
  Receive Date: 20180518
  Receipt Date: 20180522
  Transmission Date: 20180711
  Serious: Yes (Other)
  Sender: FDA-Public Use
  Company Number: CA-CELLTRION INC.-2018CA019816

PATIENT

DRUGS (2)
  1. INFLECTRA [Suspect]
     Active Substance: INFLIXIMAB-DYYB
     Dosage: 400 MG, CYCLIC (EVERY 2, 6 WEEKS, THEN EVERY 8  WEEKS)
     Route: 042
     Dates: start: 20180511
  2. INFLECTRA [Suspect]
     Active Substance: INFLIXIMAB-DYYB
     Indication: CROHN^S DISEASE
     Dosage: 400 MG, CYCLIC (EVERY 2, 6WEEKS, THEN EVERY 8 WEEKS
     Route: 042
     Dates: start: 20180427

REACTIONS (5)
  - Weight increased [Unknown]
  - Arthralgia [Unknown]
  - Anal fissure [Unknown]
  - Heart rate irregular [Unknown]
  - Anal abscess [Unknown]

NARRATIVE: CASE EVENT DATE: 20180511
